FAERS Safety Report 6882469-6 (Version None)
Quarter: 2010Q3

REPORT INFORMATION
  Report Type: 
  Country: None (occurrence: None)
  Receive Date: 20100729
  Receipt Date: 20100721
  Transmission Date: 20110219
  Serious: Yes (Hospitalization)
  Sender: FDA-Public Use
  Company Number: JP-BAYER-201013726BYL

PATIENT
  Age: 65 Year
  Sex: Male
  Weight: 72 kg

DRUGS (6)
  1. NEXAVAR [Suspect]
     Indication: HEPATIC NEOPLASM MALIGNANT
     Dosage: UNIT DOSE: 200 MG
     Route: 048
     Dates: start: 20090731, end: 20090813
  2. NEXAVAR [Suspect]
     Dosage: UNIT DOSE: 200 MG
     Route: 048
     Dates: start: 20090827, end: 20090917
  3. GASTER D [Concomitant]
     Dosage: SINCE BEFORE ADMINISTRATION
     Route: 048
  4. NORVASC [Concomitant]
     Dosage: SINCE BEFORE ADMINISTRATION
     Route: 048
  5. LOXONIN [Concomitant]
     Dosage: SINCE BEFORE ADMINISTRATION
     Route: 048
  6. CYTOTEC [Concomitant]
     Dosage: SINCE BEFORE ADMINISTRATION
     Route: 048

REACTIONS (2)
  - DECREASED APPETITE [None]
  - MALAISE [None]
